FAERS Safety Report 5393785-1 (Version None)
Quarter: 2007Q3

REPORT INFORMATION
  Report Type: 
  Country: None (occurrence: None)
  Receive Date: 20070719
  Receipt Date: 20070719
  Transmission Date: 20080115
  Serious: Yes (Life-Threatening)
  Sender: FDA-Public Use
  Company Number: None

PATIENT
  Age: 44 Year
  Sex: Male
  Weight: 68 kg

DRUGS (1)
  1. HURRICANE TOPICAL SPRAY [Suspect]

REACTIONS (1)
  - METHAEMOGLOBINAEMIA [None]
